FAERS Safety Report 17135232 (Version 1)
Quarter: 2019Q4

REPORT INFORMATION
  Report Type: Spontaneous
  Country: MY (occurrence: MY)
  Receive Date: 20191210
  Receipt Date: 20191210
  Transmission Date: 20200122
  Serious: Yes (Other)
  Sender: FDA-Public Use
  Company Number: NVSC2019MY060956

PATIENT
  Age: 77 Year
  Sex: Female

DRUGS (1)
  1. CEFAZOLIN ^SANDOZ^ [Suspect]
     Active Substance: CEFAZOLIN
     Indication: SEPSIS
     Dosage: 1 DF, QD
     Route: 042

REACTIONS (1)
  - Coagulopathy [Recovered/Resolved]
